FAERS Safety Report 8430994-9 (Version None)
Quarter: 2012Q2

REPORT INFORMATION
  Report Type: 
  Country: None (occurrence: None)
  Receive Date: 20120612
  Receipt Date: 20120604
  Transmission Date: 20120825
  Serious: Yes (Hospitalization)
  Sender: FDA-Public Use
  Company Number: FR-FRI-1000031214

PATIENT
  Age: 77 Year
  Sex: Female

DRUGS (10)
  1. ZOCOR [Concomitant]
     Indication: DYSLIPIDAEMIA
  2. DITROPAN [Concomitant]
     Indication: MICTURITION DISORDER
  3. MODOPAR [Concomitant]
     Indication: PARKINSON'S DISEASE
  4. ALLOPURINOL [Concomitant]
     Indication: GOUT
  5. CITALOPRAM HYDROBROMIDE [Suspect]
     Indication: BIPOLAR DISORDER
     Route: 048
  6. DEPAKOTE [Concomitant]
     Indication: BIPOLAR DISORDER
  7. CALCIPARINE [Suspect]
     Indication: AORTIC VALVE REPLACEMENT
  8. LASIX [Concomitant]
     Indication: CARDIAC FAILURE
     Dosage: 60 MG
  9. CALCIPARINE [Suspect]
     Indication: CORONARY ARTERY BYPASS
     Dosage: 20 000 IU/ 0.8 ML
     Dates: start: 20120228, end: 20120412
  10. LASIX [Concomitant]
     Indication: AORTIC VALVE INCOMPETENCE

REACTIONS (1)
  - HAEMATOMA [None]
